FAERS Safety Report 14292473 (Version 2)
Quarter: 2017Q4

REPORT INFORMATION
  Report Type: Report from Study
  Country: HK (occurrence: HK)
  Receive Date: 20171215
  Receipt Date: 20171220
  Transmission Date: 20180321
  Serious: Yes (Life-Threatening, Hospitalization)
  Sender: FDA-Public Use
  Company Number: HK-009507513-1707HKG002370

PATIENT
  Age: 69 Year
  Sex: Female
  Weight: 43 kg

DRUGS (27)
  1. FUROSEMIDE. [Suspect]
     Active Substance: FUROSEMIDE
     Dosage: 40 MG, QD
     Route: 048
     Dates: start: 20170721, end: 20171205
  2. VALSARTAN. [Suspect]
     Active Substance: VALSARTAN
     Indication: CARDIAC FAILURE CONGESTIVE
     Dosage: 80 MG, BID, FORMULATION: CAPLET
     Route: 048
     Dates: start: 20170714, end: 20170717
  3. FUROSEMIDE. [Suspect]
     Active Substance: FUROSEMIDE
     Indication: CARDIAC FAILURE CONGESTIVE
     Dosage: 40 MG, ONCE
     Route: 048
     Dates: start: 20170712, end: 20170712
  4. CARVEDILOL. [Suspect]
     Active Substance: CARVEDILOL
     Indication: CARDIAC FAILURE CONGESTIVE
     Dosage: 9.375 MG, BID
     Route: 048
     Dates: start: 20140607, end: 20170712
  5. DIGOXIN. [Suspect]
     Active Substance: DIGOXIN
     Indication: CARDIAC FAILURE CONGESTIVE
     Dosage: 62.5 MICROGRAM, QD
     Route: 048
     Dates: start: 20170607, end: 20170712
  6. RESONIUM A [Suspect]
     Active Substance: SODIUM POLYSTYRENE SULFONATE
     Indication: HYPERKALAEMIA
     Dosage: 15 G, ONCE
     Route: 048
     Dates: start: 20170711, end: 20170711
  7. BETALOC ZOK [Suspect]
     Active Substance: METOPROLOL SUCCINATE
     Indication: HYPERTENSION
     Dosage: 25 MG, BID
     Route: 048
     Dates: start: 20170721
  8. PANTOPRAZOLE [Concomitant]
     Active Substance: PANTOPRAZOLE
     Indication: ANTACID THERAPY
     Dosage: 40 MG, QD, FORMULATION: CAPLET
     Route: 048
     Dates: start: 20160204
  9. FUROSEMIDE. [Suspect]
     Active Substance: FUROSEMIDE
     Indication: ACUTE PULMONARY OEDEMA
     Dosage: 40 MG, TID
     Route: 042
     Dates: start: 20170713, end: 20170715
  10. FUROSEMIDE. [Suspect]
     Active Substance: FUROSEMIDE
     Indication: FLUID OVERLOAD
     Dosage: 40 MG, BID
     Route: 048
     Dates: start: 20170717, end: 20170721
  11. CARVEDILOL. [Concomitant]
     Active Substance: CARVEDILOL
     Indication: CARDIAC FAILURE CONGESTIVE
     Dosage: 6.25 MG, BID
     Route: 048
     Dates: start: 20170712, end: 20170714
  12. SODIUM CHLORIDE. [Suspect]
     Active Substance: SODIUM CHLORIDE
     Indication: HYPONATRAEMIA
     Dosage: 900 MG, BID
     Route: 048
     Dates: start: 20170712, end: 20170713
  13. ROSUVASTATIN CALCIUM. [Concomitant]
     Active Substance: ROSUVASTATIN CALCIUM
     Indication: HYPERLIPIDAEMIA
     Dosage: 5 MG, QD
     Route: 048
     Dates: start: 20170626
  14. FERROUS SULFATE. [Concomitant]
     Active Substance: FERROUS SULFATE
     Indication: IRON DEFICIENCY ANAEMIA
     Dosage: 300 MG, QD
     Route: 048
     Dates: start: 20141102
  15. FUROSEMIDE. [Suspect]
     Active Substance: FUROSEMIDE
     Indication: CARDIAC FAILURE CONGESTIVE
     Dosage: 20 MG, QD
     Route: 048
     Dates: start: 20170716, end: 20170717
  16. FUROSEMIDE. [Suspect]
     Active Substance: FUROSEMIDE
     Indication: CARDIAC FAILURE CONGESTIVE
  17. VALSARTAN. [Suspect]
     Active Substance: VALSARTAN
     Indication: HYPERTENSION
     Dosage: 40 MG, QD, FORMULATION: CAPLET
     Route: 048
     Dates: start: 20170717, end: 20170718
  18. VALSARTAN. [Suspect]
     Active Substance: VALSARTAN
     Dosage: 40 MG, BID
     Route: 048
     Dates: start: 20170713, end: 20170714
  19. BETALOC ZOK [Suspect]
     Active Substance: METOPROLOL SUCCINATE
     Indication: HYPERTENSION
     Dosage: 25 MG, QD
     Route: 048
     Dates: start: 20170719, end: 20170721
  20. DOPAMINE [Suspect]
     Active Substance: DOPAMINE\DOPAMINE HYDROCHLORIDE
     Indication: HYPOTENSION
     Dosage: UNK, FREQUENCY: CONTINUOUS
     Route: 042
     Dates: start: 20170715, end: 20170717
  21. AMIODARONE [Suspect]
     Active Substance: AMIODARONE
     Indication: ATRIAL FIBRILLATION
     Dosage: UNK, FREQUENCY: CONTINUOUS
     Route: 042
     Dates: start: 20170719, end: 20170721
  22. PRE TRIAL THERAPY [Suspect]
     Active Substance: UNSPECIFIED INGREDIENT
     Indication: CARDIAC FAILURE
  23. PHYTONADIONE. [Suspect]
     Active Substance: PHYTONADIONE
     Indication: PREMEDICATION
     Dosage: 1 MG, ONCE
     Route: 042
     Dates: start: 20170711, end: 20170711
  24. VALSARTAN. [Suspect]
     Active Substance: VALSARTAN
     Indication: CARDIAC FAILURE CONGESTIVE
  25. VALSARTAN. [Suspect]
     Active Substance: VALSARTAN
     Indication: HYPERTENSION
     Dosage: 40 MG, BID, FORMULATION: CAPLET
     Route: 048
     Dates: start: 20170718, end: 20171205
  26. SPIRONOLACTONE. [Suspect]
     Active Substance: SPIRONOLACTONE
     Indication: CARDIAC FAILURE CONGESTIVE
     Dosage: 12.5 MG, QD
     Route: 048
     Dates: start: 20170716, end: 20170718
  27. SPIRONOLACTONE. [Suspect]
     Active Substance: SPIRONOLACTONE
     Indication: HYPERTENSION
     Dosage: 25 MG, QD
     Route: 048
     Dates: start: 20170718, end: 20171122

REACTIONS (2)
  - Left ventricular failure [Recovered/Resolved]
  - International normalised ratio increased [Recovered/Resolved]

NARRATIVE: CASE EVENT DATE: 20170711
